FAERS Safety Report 4434029-4 (Version None)
Quarter: 2004Q3

REPORT INFORMATION
  Report Type: 
  Country: None (occurrence: None)
  Receive Date: 20040825
  Receipt Date: 20040811
  Transmission Date: 20050211
  Serious: Yes (Death)
  Sender: FDA-Public Use
  Company Number: EWC040539310

PATIENT
  Age: 84 Year
  Sex: Female

DRUGS (4)
  1. ZYPREXA [Suspect]
     Indication: AGITATION
     Dosage: 5 MG/2 DAY
     Dates: start: 20030901, end: 20040409
  2. BURONIL (MELPERONE HYDROCHLORIDE) [Concomitant]
  3. REMINYL [Concomitant]
  4. AKINETON [Concomitant]

REACTIONS (6)
  - BLOOD GLUCOSE DECREASED [None]
  - CEREBROVASCULAR ACCIDENT [None]
  - GENERAL PHYSICAL HEALTH DETERIORATION [None]
  - HEMIPLEGIA [None]
  - HYPERTENSION [None]
  - VISUAL FIELD DEFECT [None]
